FAERS Safety Report 7228980-X (Version None)
Quarter: 2011Q1

REPORT INFORMATION
  Report Type: 
  Country: None (occurrence: None)
  Receive Date: 20110117
  Receipt Date: 20110105
  Transmission Date: 20110831
  Serious: Yes (Other)
  Sender: FDA-Public Use
  Company Number: FR-JNJFOC-20101205852

PATIENT
  Age: 18 Year
  Sex: Male

DRUGS (3)
  1. AUGMENTIN '125' [Concomitant]
     Route: 065
  2. ACETAMINOPHEN AND TRAMADOL HCL [Suspect]
     Indication: PAIN
     Route: 048
  3. ACETAMINOPHEN AND TRAMADOL HCL [Suspect]
     Indication: THERMAL BURN
     Route: 048

REACTIONS (7)
  - WEIGHT DECREASED [None]
  - PYREXIA [None]
  - RED BLOOD CELL SEDIMENTATION RATE INCREASED [None]
  - WOUND INFECTION [None]
  - FATIGUE [None]
  - HEPATITIS [None]
  - CHOLESTATIC LIVER INJURY [None]
